FAERS Safety Report 13637350 (Version 3)
Quarter: 2019Q1

REPORT INFORMATION
  Report Type: Report from Study
  Country: US (occurrence: US)
  Receive Date: 20170609
  Receipt Date: 20190305
  Transmission Date: 20190417
  Serious: Yes (Hospitalization)
  Sender: FDA-Public Use
  Company Number: US-ASTELLAS-2017US012550

PATIENT
  Sex: Female

DRUGS (3)
  1. ISAVUCONAZOLE [Suspect]
     Active Substance: ISAVUCONAZOLE
     Indication: ENDOCARDITIS
     Route: 048
     Dates: start: 20170330, end: 20180410
  2. ISAVUCONAZOLE [Suspect]
     Active Substance: ISAVUCONAZOLE
     Indication: SUBACUTE ENDOCARDITIS
  3. ISAVUCONAZOLE [Suspect]
     Active Substance: ISAVUCONAZOLE
     Indication: CARDIAC VALVE DISEASE

REACTIONS (5)
  - Dehydration [Unknown]
  - Diarrhoea [Unknown]
  - Treatment noncompliance [Unknown]
  - Product use in unapproved indication [Unknown]
  - Off label use [Unknown]
